FAERS Safety Report 18573008 (Version 1)
Quarter: 2020Q4

REPORT INFORMATION
  Report Type: Spontaneous
  Country: GB (occurrence: GB)
  Receive Date: 20201203
  Receipt Date: 20201203
  Transmission Date: 20210114
  Serious: Yes (Life-Threatening, Disabling)
  Sender: FDA-Public Use
  Company Number: GB-TEVA-2020-GB-1854443

PATIENT
  Age: 46 Year
  Sex: Female

DRUGS (3)
  1. PAROXETINE. [Suspect]
     Active Substance: PAROXETINE
     Route: 048
     Dates: start: 20201002, end: 20201007
  2. PAROXETINE. [Suspect]
     Active Substance: PAROXETINE
     Route: 048
     Dates: start: 20201007, end: 20201012
  3. PAROXETINE. [Suspect]
     Active Substance: PAROXETINE
     Indication: DEPRESSION
     Route: 048
     Dates: start: 20031104, end: 20201002

REACTIONS (8)
  - Emotional distress [Unknown]
  - Anxiety [Unknown]
  - Violence-related symptom [Unknown]
  - Withdrawal syndrome [Unknown]
  - Visual impairment [Unknown]
  - Suicidal ideation [Recovering/Resolving]
  - Tremor [Unknown]
  - Formication [Unknown]

NARRATIVE: CASE EVENT DATE: 202010
